FAERS Safety Report 7921933-5 (Version None)
Quarter: 2011Q4

REPORT INFORMATION
  Report Type: 
  Country: None (occurrence: None)
  Receive Date: 20111117
  Receipt Date: 20111027
  Transmission Date: 20120403
  Serious: Yes (Hospitalization)
  Sender: FDA-Public Use
  Company Number: FR-ROCHE-753288

PATIENT
  Age: 64 Year
  Sex: Female

DRUGS (12)
  1. LANTUS [Concomitant]
  2. VFEND [Concomitant]
  3. TRISENOX [Suspect]
     Indication: ACUTE MYELOID LEUKAEMIA
     Dosage: AT 13 MG/HOUR 5 DAYS/7 FOR 4 WEEKS
     Route: 042
     Dates: start: 20090911, end: 20091006
  4. IRBESARTAN AND HYDROCHLOROTHIAZIDE [Concomitant]
  5. VESANOID [Suspect]
     Dosage: MAINTAINENCE TREATMENT
     Route: 048
     Dates: start: 20100120, end: 20100215
  6. PREDNISOLONE [Concomitant]
  7. CODOLIPRANE [Concomitant]
  8. KAYEXALATE [Concomitant]
  9. UVEDOSE [Concomitant]
     Route: 048
  10. RETACRIT [Concomitant]
  11. VESANOID [Suspect]
     Indication: ACUTE MYELOID LEUKAEMIA
     Route: 048
     Dates: start: 20090730, end: 20090826
  12. GLUCOPHAGE [Concomitant]

REACTIONS (3)
  - MYOPATHY [None]
  - POLYNEUROPATHY [None]
  - MYALGIA [None]
